FAERS Safety Report 5000023-8 (Version None)
Quarter: 2006Q2

REPORT INFORMATION
  Report Type: 
  Country: None (occurrence: None)
  Receive Date: 20060509
  Receipt Date: 20060427
  Transmission Date: 20061013
  Serious: No
  Sender: FDA-Public Use
  Company Number: 2003-110313-NL

PATIENT
  Age: 48 Year
  Sex: Female

DRUGS (2)
  1. MIRTAZAPINE [Suspect]
     Indication: DEPRESSION
     Dosage: 45 MG ORAL
     Route: 048
     Dates: start: 20030101, end: 20030303
  2. DIAZEPAM [Concomitant]

REACTIONS (1)
  - NEUTROPENIA [None]
